FAERS Safety Report 21603781 (Version 3)
Quarter: 2022Q4

REPORT INFORMATION
  Report Type: Report from Study
  Country: IT (occurrence: IT)
  Receive Date: 20221116
  Receipt Date: 20221207
  Transmission Date: 20230113
  Serious: Yes (Hospitalization)
  Sender: FDA-Public Use
  Company Number: IT-009507513-2211ITA002401

PATIENT
  Age: 66 Year
  Sex: Female

DRUGS (8)
  1. EPIRUBICIN HYDROCHLORIDE [Suspect]
     Active Substance: EPIRUBICIN HYDROCHLORIDE
     Indication: Triple negative breast cancer
     Dosage: 155 MG, EVERY 3 WEEKS
     Route: 042
     Dates: start: 20220930, end: 20220930
  2. PEMBROLIZUMAB [Suspect]
     Active Substance: PEMBROLIZUMAB
     Indication: Triple negative breast cancer
     Dosage: 200 MILLIGRAM, Q3W
     Route: 042
     Dates: start: 20220701, end: 20220930
  3. CYCLOPHOSPHAMIDE [Suspect]
     Active Substance: CYCLOPHOSPHAMIDE
     Indication: Triple negative breast cancer
     Dosage: 1050 MG, EVERY 3 WEEKS
     Route: 042
     Dates: start: 20220930, end: 20220930
  4. LEVOTHYROXINE [Concomitant]
     Active Substance: LEVOTHYROXINE
     Indication: Hypothyroidism
     Dosage: 75 MICROGRAM, DAILY
     Route: 048
  5. ZOFENOPRIL [Concomitant]
     Active Substance: ZOFENOPRIL
     Indication: Hypertension
     Dosage: 30 MILLIGRAM, DAILY
     Route: 048
     Dates: end: 20221028
  6. INSULIN GLARGINE [Concomitant]
     Active Substance: INSULIN GLARGINE
     Indication: Diabetes mellitus
     Dosage: 16 IU INTERNATIONAL UNIT(S), DAILY
     Route: 058
  7. BISOPROLOL [Concomitant]
     Active Substance: BISOPROLOL
     Indication: Hypertension
     Dosage: 5 MILLIGRAM, DAILY
     Route: 048
  8. METFORMIN [Concomitant]
     Active Substance: METFORMIN HYDROCHLORIDE
     Indication: Diabetes mellitus
     Dosage: 1000 MILLIGRAM, TWICE A DAY
     Route: 048
     Dates: end: 20221028

REACTIONS (3)
  - Blood creatinine increased [Recovered/Resolved]
  - Anaemia [Recovered/Resolved]
  - Nephritis [Recovering/Resolving]

NARRATIVE: CASE EVENT DATE: 20221027
